FAERS Safety Report 12461180 (Version 1)
Quarter: 2016Q2

REPORT INFORMATION
  Report Type: Spontaneous
  Country: US (occurrence: US)
  Receive Date: 20160613
  Receipt Date: 20160613
  Transmission Date: 20160815
  Serious: No
  Sender: FDA-Public Use
  Company Number: US-US WORLDMEDS, LLC-USW201604-000282

PATIENT
  Sex: Male
  Weight: 90.71 kg

DRUGS (12)
  1. CARBIDOPA/LEVODOPA ER [Concomitant]
     Active Substance: CARBIDOPA\LEVODOPA
  2. TOPRAZOLE [Concomitant]
  3. MYRBETRIQ [Concomitant]
     Active Substance: MIRABEGRON
  4. TRIMETHOBENZAMIDE [Concomitant]
     Active Substance: TRIMETHOBENZAMIDE
  5. METADINE [Concomitant]
  6. TAMSULOSIN [Concomitant]
     Active Substance: TAMSULOSIN
  7. VALSAR [Concomitant]
  8. AZILECT [Concomitant]
     Active Substance: RASAGILINE MESYLATE
  9. HYDROCODONE [Concomitant]
     Active Substance: HYDROCODONE
  10. APOKYN [Suspect]
     Active Substance: APOMORPHINE HYDROCHLORIDE
     Dates: start: 201505
  11. ESCITALOPRAM [Concomitant]
     Active Substance: ESCITALOPRAM OXALATE
  12. LINZESS [Concomitant]
     Active Substance: LINACLOTIDE

REACTIONS (2)
  - Injection site bruising [Unknown]
  - Product quality issue [Unknown]
